FAERS Safety Report 25674615 (Version 2)
Quarter: 2025Q3

REPORT INFORMATION
  Report Type: Spontaneous
  Country: JP (occurrence: JP)
  Receive Date: 20250813
  Receipt Date: 20250911
  Transmission Date: 20251021
  Serious: Yes (Life-Threatening, Hospitalization, Other)
  Sender: RANBAXY
  Company Number: JP-SUN PHARMACEUTICAL INDUSTRIES INC-2025R1-522183

PATIENT
  Age: 49 Year
  Sex: Female
  Weight: 44.6 kg

DRUGS (16)
  1. LITHIUM [Suspect]
     Active Substance: LITHIUM
     Indication: Major depression
     Dosage: 500 MILLIGRAM, QD
     Route: 048
  2. BIPERIDEN [Concomitant]
     Active Substance: BIPERIDEN
     Indication: Major depression
     Route: 048
  3. LURASIDONE [Concomitant]
     Active Substance: LURASIDONE
     Indication: Major depression
     Route: 048
  4. MIRTAZAPINE [Concomitant]
     Active Substance: MIRTAZAPINE
     Indication: Major depression
     Route: 048
  5. QUETIAPINE [Concomitant]
     Active Substance: QUETIAPINE
     Indication: Major depression
     Route: 048
  6. RAMELTEON [Concomitant]
     Active Substance: RAMELTEON
     Indication: Major depression
     Route: 048
  7. FLUNITRAZEPAM [Concomitant]
     Active Substance: FLUNITRAZEPAM
     Indication: Major depression
     Route: 048
  8. FENTANYL [Concomitant]
     Active Substance: FENTANYL
     Indication: Anaesthesia
     Route: 065
  9. PROPOFOL [Concomitant]
     Active Substance: PROPOFOL
     Indication: Anaesthesia
     Route: 065
  10. PROPOFOL [Concomitant]
     Active Substance: PROPOFOL
     Route: 065
  11. REMIFENTANIL [Concomitant]
     Active Substance: REMIFENTANIL
     Indication: Anaesthesia
     Route: 065
  12. REMIFENTANIL [Concomitant]
     Active Substance: REMIFENTANIL
     Route: 065
  13. ROCURONIUM [Concomitant]
     Active Substance: ROCURONIUM BROMIDE
     Indication: Anaesthesia
     Route: 065
  14. PHENYLEPHRINE [Concomitant]
     Active Substance: PHENYLEPHRINE
     Indication: Anaesthesia
     Route: 065
  15. PHENYLEPHRINE [Concomitant]
     Active Substance: PHENYLEPHRINE
     Route: 065
  16. PRILOCAINE [Concomitant]
     Active Substance: PRILOCAINE
     Indication: Anaesthesia
     Route: 065

REACTIONS (1)
  - Hypothyroidism [Unknown]
